FAERS Safety Report 18772326 (Version 3)
Quarter: 2021Q1

REPORT INFORMATION
  Report Type: Spontaneous
  Country: GB (occurrence: GB)
  Receive Date: 20210122
  Receipt Date: 20210224
  Transmission Date: 20210419
  Serious: Yes (Hospitalization, Disabling)
  Sender: FDA-Public Use
  Company Number: GB-SUN PHARMACEUTICAL INDUSTRIES LTD-2021RR-277012

PATIENT
  Age: 47 Year
  Sex: Female

DRUGS (34)
  1. DEXAMETHASONE. [Concomitant]
     Active Substance: DEXAMETHASONE
     Indication: METASTASES TO CENTRAL NERVOUS SYSTEM
     Dosage: 4 MG, 2X/DAY
     Route: 048
     Dates: start: 20170809, end: 20170919
  2. DEXAMETHASONE. [Concomitant]
     Active Substance: DEXAMETHASONE
     Dosage: 8 MILLIGRAM, UNK
     Route: 048
     Dates: start: 20170809, end: 20170919
  3. FILGRASTIM [Concomitant]
     Active Substance: FILGRASTIM
     Dosage: 30 UG, QD
     Route: 058
     Dates: start: 20151120, end: 20151127
  4. LETROZOLE. [Suspect]
     Active Substance: LETROZOLE
     Indication: HER2 POSITIVE BREAST CANCER
     Dosage: 2.5 MILLIGRAM, DAILY
     Route: 048
     Dates: start: 20160308, end: 20161123
  5. DOCETAXEL. [Suspect]
     Active Substance: DOCETAXEL
     Indication: BREAST CANCER METASTATIC
     Dosage: 108 MG, EVERY 3 WEEKS MAINTENANCE DOSE
     Route: 042
     Dates: start: 20151120, end: 20160222
  6. PERTUZUMAB. [Suspect]
     Active Substance: PERTUZUMAB
     Indication: BREAST CANCER METASTATIC
     Dosage: 420 MG, EVERY 3 WEEKS MAINTENANCE DOSE
     Route: 042
     Dates: start: 20151120, end: 20161104
  7. TRASTUZUMAB. [Suspect]
     Active Substance: TRASTUZUMAB
     Indication: HER2 POSITIVE BREAST CANCER
     Dosage: 525 MG, UNK (LOADING DOSE)
     Route: 042
     Dates: start: 20151023, end: 20151023
  8. MIDAZOLAM. [Concomitant]
     Active Substance: MIDAZOLAM
     Dosage: 2.5 MG, PRN
     Route: 058
     Dates: start: 20170918, end: 20170920
  9. MORPHINE SULPHATE [Concomitant]
     Active Substance: MORPHINE SULFATE
     Indication: PALLIATIVE CARE
     Dosage: 2.5 MG, PRN
     Route: 058
     Dates: start: 20170918, end: 20170920
  10. ZOLEDRONIC ACID [Concomitant]
     Active Substance: ZOLEDRONIC ACID
     Indication: PRODUCT USED FOR UNKNOWN INDICATION
     Dosage: 4 MG, QMO
     Route: 042
     Dates: start: 20151022, end: 20170713
  11. TRASTUZUMAB. [Suspect]
     Active Substance: TRASTUZUMAB
     Dosage: 240 MG, EVERY 3 WEEKS
     Route: 042
     Dates: start: 20161201, end: 20170302
  12. DEXAMETHASONE. [Concomitant]
     Active Substance: DEXAMETHASONE
     Indication: NEOPLASM PROGRESSION
     Dosage: 16 MILLIGRAM, UNK
     Route: 048
     Dates: start: 20170803, end: 20170809
  13. HALOPERIDOL. [Concomitant]
     Active Substance: HALOPERIDOL
     Indication: PALLIATIVE CARE
     Dosage: 1.5 MG, PRN
     Route: 058
     Dates: start: 20170919, end: 20170920
  14. LANSOPRAZOLE. [Concomitant]
     Active Substance: LANSOPRAZOLE
     Indication: PROPHYLAXIS
     Dosage: 30 MILLIGRAM, DAILY
     Route: 048
     Dates: start: 20170728, end: 20170905
  15. TRASTUZUMAB. [Suspect]
     Active Substance: TRASTUZUMAB
     Dosage: 200 MG, EVERY 3 WEEKS
     Route: 042
     Dates: start: 20170330, end: 20170608
  16. FILGRASTIM [Concomitant]
     Active Substance: FILGRASTIM
     Indication: PALLIATIVE CARE
     Dosage: 300 UG, UNK
     Route: 058
     Dates: start: 20151210, end: 20160305
  17. IRINOTECAN [Suspect]
     Active Substance: IRINOTECAN
     Indication: HER2 POSITIVE BREAST CANCER
     Dosage: 132 MG (LOADING DOSE)
     Route: 042
     Dates: start: 20151022, end: 20151022
  18. DOCETAXEL. [Suspect]
     Active Substance: DOCETAXEL
     Indication: HER2 POSITIVE BREAST CANCER
     Dosage: 132 MG (LOADING DOSE)
     Route: 042
     Dates: start: 20151022, end: 20151022
  19. CHLORPHENAMINE [Suspect]
     Active Substance: CHLORPHENIRAMINE MALEATE
     Indication: PROPHYLAXIS
     Dosage: 30 MG, QW
     Route: 042
     Dates: start: 20151022, end: 20160222
  20. CHLORPHENAMINE [Suspect]
     Active Substance: CHLORPHENIRAMINE MALEATE
     Dosage: 10 MG, 3X/WEEK
     Route: 042
     Dates: start: 20151022, end: 20160222
  21. DEXAMETHASONE. [Concomitant]
     Active Substance: DEXAMETHASONE
     Indication: PROPHYLAXIS
     Dosage: 2 MG, QD
     Route: 048
     Dates: start: 20170726, end: 20170803
  22. FILGRASTIM [Concomitant]
     Active Substance: FILGRASTIM
     Indication: PROPHYLAXIS
     Dosage: 300 UG, 1X/DAY
     Route: 058
     Dates: start: 20151120, end: 20151127
  23. HYDROCORTISONE. [Concomitant]
     Active Substance: HYDROCORTISONE
     Dosage: 300 MG, QW
     Route: 042
     Dates: start: 20151022, end: 20160222
  24. DEXAMETHASONE. [Concomitant]
     Active Substance: DEXAMETHASONE
     Indication: DISEASE PROGRESSION
     Dosage: 8 MG (0.5 DAY)
     Route: 048
     Dates: start: 20170803, end: 20170809
  25. DEXAMETHASONE. [Concomitant]
     Active Substance: DEXAMETHASONE
     Dosage: 8 MG (TWICE A DAY FOR 3 DAYS STARTING DAY BEFORE CHEMO) (0.5 DAY)
     Route: 048
     Dates: start: 20151210, end: 20160222
  26. FILGRASTIM [Concomitant]
     Active Substance: FILGRASTIM
     Dosage: 30 MICROGRAM, UNK
     Route: 058
  27. GLYCOPYRRONIUM [Concomitant]
     Active Substance: GLYCOPYRRONIUM
     Indication: PALLIATIVE CARE
     Dosage: 400 UG, PRN
     Route: 058
     Dates: start: 20170919, end: 20170920
  28. TRASTUZUMAB. [Suspect]
     Active Substance: TRASTUZUMAB
     Indication: HER2 POSITIVE BREAST CANCER
     Dosage: 400 MG, QW3 (MAINTENANCE DOSE)
     Route: 042
     Dates: start: 20151120, end: 20161104
  29. HALOPERIDOL. [Concomitant]
     Active Substance: HALOPERIDOL
     Dosage: 1.5 MG, BID
     Route: 058
     Dates: start: 20170810, end: 20170919
  30. MIDAZOLAM. [Concomitant]
     Active Substance: MIDAZOLAM
     Indication: PALLIATIVE CARE
     Dosage: 2.5 MG, PRN
     Route: 058
  31. IRINOTECAN [Suspect]
     Active Substance: IRINOTECAN
     Indication: BREAST CANCER METASTATIC
     Dosage: 108MG EVERY 3 WEEKS
     Route: 042
     Dates: start: 20151120, end: 20160222
  32. PERTUZUMAB. [Suspect]
     Active Substance: PERTUZUMAB
     Indication: HER2 POSITIVE BREAST CANCER
     Dosage: MAINTENANCE DOSE
     Route: 042
     Dates: start: 20151120, end: 20161104
  33. PERTUZUMAB. [Suspect]
     Active Substance: PERTUZUMAB
     Dosage: 840 MG (LOADING DOSE)
     Route: 042
     Dates: start: 20151023, end: 20151023
  34. HYDROCORTISONE. [Concomitant]
     Active Substance: HYDROCORTISONE
     Indication: PROPHYLAXIS
     Dosage: 100 MG (0.33 WEEK)
     Route: 042
     Dates: start: 20151022, end: 20160222

REACTIONS (10)
  - Nasopharyngitis [Recovered/Resolved]
  - Migraine [Not Recovered/Not Resolved]
  - Oropharyngeal pain [Recovered/Resolved]
  - Depression [Not Recovered/Not Resolved]
  - Lethargy [Not Recovered/Not Resolved]
  - Dyschezia [Not Recovered/Not Resolved]
  - Abnormal sensation in eye [Recovered/Resolved]
  - Asthenia [Recovered/Resolved]
  - Decreased appetite [Recovered/Resolved]
  - Hypocalcaemia [Not Recovered/Not Resolved]

NARRATIVE: CASE EVENT DATE: 20160112
